FAERS Safety Report 14657643 (Version 1)
Quarter: 2018Q1

REPORT INFORMATION
  Report Type: Report from Study
  Country: BR (occurrence: BR)
  Receive Date: 20180320
  Receipt Date: 20180320
  Transmission Date: 20180509
  Serious: Yes (Death, Disabling, Other)
  Sender: FDA-Public Use
  Company Number: BR-UCBSA-2018011089

PATIENT
  Age: 62 Year
  Sex: Male

DRUGS (3)
  1. PROLOPA [Concomitant]
     Active Substance: BENSERAZIDE\LEVODOPA
     Indication: PRODUCT USED FOR UNKNOWN INDICATION
  2. ROTIGOTINE [Suspect]
     Active Substance: ROTIGOTINE
     Indication: PARKINSON^S DISEASE
     Dosage: 6 MG, ONCE DAILY (QD)
     Route: 062
     Dates: start: 201708, end: 201708
  3. ROTIGOTINE [Suspect]
     Active Substance: ROTIGOTINE
     Dosage: 2 MG, ONCE DAILY (QD)
     Route: 062
     Dates: start: 201708, end: 20170818

REACTIONS (7)
  - Vomiting [Unknown]
  - Parkinson^s disease [Unknown]
  - Application site hypersensitivity [Unknown]
  - Tremor [Unknown]
  - Dizziness [Unknown]
  - Muscular weakness [Unknown]
  - Intestinal haemorrhage [Fatal]

NARRATIVE: CASE EVENT DATE: 201708
